FAERS Safety Report 9387909 (Version 5)
Quarter: 2015Q4

REPORT INFORMATION
  Report Type: Spontaneous
  Country: US (occurrence: US)
  Receive Date: 20130708
  Receipt Date: 20151124
  Transmission Date: 20160305
  Serious: Yes (Hospitalization, Other)
  Sender: FDA-Public Use
  Company Number: US-009507513-1307USA001894

PATIENT
  Sex: Female
  Weight: 58.5 kg

DRUGS (4)
  1. FOSAMAX [Suspect]
     Active Substance: ALENDRONATE SODIUM
     Indication: OSTEOPOROSIS
     Dosage: UNK
     Route: 048
     Dates: start: 1995, end: 200701
  2. SERTRALINE HYDROCHLORIDE. [Concomitant]
     Active Substance: SERTRALINE HYDROCHLORIDE
     Indication: DEPRESSION
     Dosage: UNK
     Dates: start: 1975, end: 2009
  3. FOSAMAX [Suspect]
     Active Substance: ALENDRONATE SODIUM
     Dosage: 70 MG, QW
     Route: 048
     Dates: end: 20121120
  4. ALENDRONATE SODIUM. [Suspect]
     Active Substance: ALENDRONATE SODIUM
     Indication: OSTEOPOROSIS
     Dosage: 70 MG, QW
     Route: 048
     Dates: start: 200803, end: 20141011

REACTIONS (45)
  - Upper limb fracture [Unknown]
  - Memory impairment [Unknown]
  - Parkinsonism [Unknown]
  - Vertigo [Unknown]
  - Dizziness [Unknown]
  - Sepsis [Unknown]
  - Adverse event [Unknown]
  - Hypertension [Unknown]
  - Gait disturbance [Unknown]
  - Treatment noncompliance [Unknown]
  - Nervousness [Unknown]
  - Anxiety [Unknown]
  - Hip arthroplasty [Unknown]
  - Radius fracture [Unknown]
  - Tooth extraction [Unknown]
  - Fall [Unknown]
  - Bipolar disorder [Unknown]
  - Cerebrovascular disorder [Unknown]
  - Femur fracture [Unknown]
  - Pubis fracture [Unknown]
  - Hypokalaemia [Unknown]
  - Urinary tract infection [Unknown]
  - Hypotension [Unknown]
  - Escherichia urinary tract infection [Unknown]
  - Fall [Unknown]
  - Fall [Unknown]
  - Schizophrenia, paranoid type [Not Recovered/Not Resolved]
  - Cerebral atrophy [Unknown]
  - Memory impairment [Unknown]
  - Arthropathy [Unknown]
  - Dental implantation [Unknown]
  - Groin pain [Unknown]
  - Gait disturbance [Unknown]
  - Parkinson^s disease [Unknown]
  - Fall [Unknown]
  - Normochromic normocytic anaemia [Not Recovered/Not Resolved]
  - Hypothyroidism [Unknown]
  - Hyponatraemia [Recovered/Resolved]
  - Appendix disorder [Unknown]
  - Humerus fracture [Unknown]
  - Vitamin D decreased [Unknown]
  - Osteopenia [Unknown]
  - Blood pressure decreased [Unknown]
  - Hypercholesterolaemia [Unknown]
  - Pneumonia [Unknown]

NARRATIVE: CASE EVENT DATE: 1995
